FAERS Safety Report 6063336-7 (Version None)
Quarter: 2009Q1

REPORT INFORMATION
  Report Type: 
  Country: None (occurrence: None)
  Receive Date: 20090203
  Receipt Date: 20090122
  Transmission Date: 20090719
  Serious: Yes (Hospitalization, Other)
  Sender: FDA-Public Use
  Company Number: IL-PFIZER INC-2008153109

PATIENT

DRUGS (12)
  1. LYRICA [Suspect]
     Indication: NEURALGIA
     Dosage: 150 MG, 2X/DAY
     Route: 048
     Dates: start: 20080601
  2. HUMALOG [Concomitant]
  3. ALLORIL [Concomitant]
  4. NORVASC [Concomitant]
  5. FUSID [Concomitant]
  6. MICROPIRIN [Concomitant]
  7. MONOCORD [Concomitant]
  8. DIMITONE [Concomitant]
  9. COZAAR [Concomitant]
  10. FAMOTIDINE [Concomitant]
  11. BONDORMIN [Concomitant]
  12. ELATROLET [Concomitant]

REACTIONS (10)
  - BLOOD GLUCOSE INCREASED [None]
  - CONFUSIONAL STATE [None]
  - DISORIENTATION [None]
  - DRUG INEFFECTIVE [None]
  - GENERAL PHYSICAL HEALTH DETERIORATION [None]
  - INSOMNIA [None]
  - MENTAL IMPAIRMENT [None]
  - SLEEP DISORDER [None]
  - SOMNOLENCE [None]
  - WEIGHT INCREASED [None]
